FAERS Safety Report 6407513-1 (Version None)
Quarter: 2009Q4

REPORT INFORMATION
  Report Type: 
  Country: None (occurrence: None)
  Receive Date: 20091015
  Receipt Date: 20091001
  Transmission Date: 20100525
  Serious: Yes (Death, Hospitalization, Other)
  Sender: FDA-Public Use
  Company Number: A-CH2009-25607

PATIENT
  Age: 31 Year
  Sex: Female
  Weight: 43.6 kg

DRUGS (8)
  1. TRACLEER [Suspect]
     Indication: SKIN ULCER
     Dosage: 62.5 MG, BID, ORAL. 62.5 MG, BID, ORAL, 125 MG, BID, ORAL, 62.5 MG, BID, ORAL, 62.5 MG, OD, ORAL
     Route: 048
     Dates: start: 20090212, end: 20090101
  2. TRACLEER [Suspect]
     Indication: SKIN ULCER
     Dosage: 62.5 MG, BID, ORAL. 62.5 MG, BID, ORAL, 125 MG, BID, ORAL, 62.5 MG, BID, ORAL, 62.5 MG, OD, ORAL
     Route: 048
     Dates: start: 20090112, end: 20090211
  3. TRACLEER [Suspect]
     Indication: SKIN ULCER
     Dosage: 62.5 MG, BID, ORAL. 62.5 MG, BID, ORAL, 125 MG, BID, ORAL, 62.5 MG, BID, ORAL, 62.5 MG, OD, ORAL
     Route: 048
     Dates: start: 20090101, end: 20090526
  4. TRACLEER [Suspect]
     Indication: SKIN ULCER
     Dosage: 62.5 MG, BID, ORAL. 62.5 MG, BID, ORAL, 125 MG, BID, ORAL, 62.5 MG, BID, ORAL, 62.5 MG, OD, ORAL
     Route: 048
     Dates: start: 20090728, end: 20090805
  5. TRACLEER [Suspect]
     Indication: SKIN ULCER
     Dosage: 62.5 MG, BID, ORAL. 62.5 MG, BID, ORAL, 125 MG, BID, ORAL, 62.5 MG, BID, ORAL, 62.5 MG, OD, ORAL
     Route: 048
     Dates: start: 20090806, end: 20090807
  6. DESLORATADINE [Concomitant]
  7. ASPIRIN [Concomitant]
  8. PULMICORT [Concomitant]

REACTIONS (10)
  - ANEURYSM RUPTURED [None]
  - CARDIAC TAMPONADE [None]
  - CEREBRAL HAEMATOMA [None]
  - CLOSTRIDIAL INFECTION [None]
  - CYTOLYTIC HEPATITIS [None]
  - DIALYSIS [None]
  - INTESTINAL PERFORATION [None]
  - PERICARDITIS [None]
  - SCLERODERMA RENAL CRISIS [None]
  - SEPTIC SHOCK [None]
